FAERS Safety Report 6425261-9 (Version None)
Quarter: 2009Q4

REPORT INFORMATION
  Report Type: 
  Country: None (occurrence: None)
  Receive Date: 20091030
  Receipt Date: 20091030
  Transmission Date: 20100525
  Serious: Yes (Other)
  Sender: FDA-Public Use
  Company Number: None

PATIENT
  Age: 8 Year
  Sex: Male
  Weight: 26.3086 kg

DRUGS (1)
  1. TAMIFLU [Suspect]
     Indication: H1N1 INFLUENZA
     Dosage: 45 MG TWICE PO 1 DOSE
     Route: 048
     Dates: start: 20091028, end: 20091028

REACTIONS (5)
  - ABDOMINAL PAIN [None]
  - CONFUSIONAL STATE [None]
  - DELIRIUM [None]
  - HALLUCINATION [None]
  - VOMITING [None]
